FAERS Safety Report 19455141 (Version 4)
Quarter: 2021Q3

REPORT INFORMATION
  Report Type: Report from Study
  Country: US (occurrence: US)
  Receive Date: 20210623
  Receipt Date: 20210917
  Transmission Date: 20211014
  Serious: No
  Sender: FDA-Public Use
  Company Number: NVSC2021US129726

PATIENT
  Sex: Male

DRUGS (2)
  1. COSENTYX [Suspect]
     Active Substance: SECUKINUMAB
     Indication: ANKYLOSING SPONDYLITIS
     Dosage: 150 MG, QMO
     Route: 058
  2. COSENTYX [Suspect]
     Active Substance: SECUKINUMAB
     Dosage: 300 MG BIW, (BENEATH THE SKIN, USUALLY VIA INJECTION)
     Route: 058

REACTIONS (6)
  - Chondropathy [Unknown]
  - Product preparation error [Unknown]
  - Oedema [Unknown]
  - Injection site pain [Unknown]
  - Arthralgia [Unknown]
  - Drug ineffective [Unknown]
